FAERS Safety Report 9742548 (Version 1)
Quarter: 2013Q4

REPORT INFORMATION
  Report Type: Spontaneous
  Country: US (occurrence: US)
  Receive Date: 20131210
  Receipt Date: 20131210
  Transmission Date: 20140711
  Serious: Yes (Hospitalization)
  Sender: FDA-Public Use
  Company Number: US-SA-2013SA128078

PATIENT
  Sex: Male

DRUGS (4)
  1. LANTUS SOLOSTAR [Suspect]
     Route: 065
  2. SOLOSTAR [Concomitant]
  3. NOVOLOG [Concomitant]
  4. INSULIN DETEMIR [Concomitant]

REACTIONS (2)
  - Adverse event [Unknown]
  - Injection site haemorrhage [Unknown]
